FAERS Safety Report 5474394-2 (Version None)
Quarter: 2007Q4

REPORT INFORMATION
  Report Type: 
  Country: None (occurrence: None)
  Receive Date: 20071002
  Receipt Date: 20070925
  Transmission Date: 20080405
  Serious: Yes (Hospitalization)
  Sender: FDA-Public Use
  Company Number: FR-AVENTIS-200713046FR

PATIENT
  Age: 87 Year
  Sex: Female

DRUGS (8)
  1. RAMIPRIL [Suspect]
     Indication: HYPERTENSION
     Route: 048
     Dates: end: 20070713
  2. LASIX [Suspect]
     Indication: HYPERTENSION
     Route: 048
     Dates: end: 20070713
  3. LIPANTHYL [Suspect]
     Indication: HYPERCHOLESTEROLAEMIA
     Route: 048
     Dates: end: 20070713
  4. AMLOR [Concomitant]
     Indication: HYPERTENSION
     Route: 048
     Dates: end: 20070713
  5. TANAKAN                            /01003103/ [Concomitant]
     Route: 048
     Dates: end: 20070717
  6. CYCLO                              /00801901/ [Concomitant]
     Route: 048
     Dates: end: 20070717
  7. VASTAREL [Concomitant]
     Route: 048
     Dates: end: 20070717
  8. MIXTARD                            /00634701/ [Concomitant]
     Indication: TYPE 1 DIABETES MELLITUS
     Route: 058
     Dates: end: 20070717

REACTIONS (2)
  - RENAL FAILURE [None]
  - RHABDOMYOLYSIS [None]
